FAERS Safety Report 4560574-7 (Version None)
Quarter: 2005Q1

REPORT INFORMATION
  Report Type: 
  Country: None (occurrence: None)
  Receive Date: 20050125
  Receipt Date: 20050118
  Transmission Date: 20050727
  Serious: Yes (Hospitalization)
  Sender: FDA-Public Use
  Company Number: GB-BRISTOL-MYERS SQUIBB COMPANY-12828216

PATIENT
  Age: 74 Year
  Sex: Female
  Weight: 86 kg

DRUGS (8)
  1. CISPLATIN [Suspect]
     Indication: ENDOMETRIAL CANCER
     Dates: start: 20041220, end: 20041220
  2. PACLITAXEL [Suspect]
     Indication: ENDOMETRIAL CANCER
     Dates: start: 20041220, end: 20041220
  3. DOXORUBICIN HCL [Suspect]
     Indication: ENDOMETRIAL CANCER
     Dates: start: 20041220, end: 20041220
  4. METFORMIN HCL [Concomitant]
  5. HUMALOG [Concomitant]
  6. PERINDOPRIL [Concomitant]
  7. ASPIRIN [Concomitant]
  8. THYROXINE [Concomitant]

REACTIONS (3)
  - HYPERKALAEMIA [None]
  - NEUTROPENIA [None]
  - PHARYNGOLARYNGEAL PAIN [None]
